FAERS Safety Report 12290732 (Version 3)
Quarter: 2016Q2

REPORT INFORMATION
  Report Type: Spontaneous
  Country: US (occurrence: US)
  Receive Date: 20160421
  Receipt Date: 20160613
  Transmission Date: 20160815
  Serious: No
  Sender: FDA-Public Use
  Company Number: US-PFIZER INC-2016197834

PATIENT
  Age: 65 Year
  Sex: Female

DRUGS (3)
  1. IBRANCE [Suspect]
     Active Substance: PALBOCICLIB
     Dosage: 125 MG, UNK
     Dates: start: 20160324
  2. IBRANCE [Suspect]
     Active Substance: PALBOCICLIB
     Dosage: 100 MG, UNK
  3. FASLODEX [Suspect]
     Active Substance: FULVESTRANT
     Dosage: UNK
     Dates: start: 20160324

REACTIONS (11)
  - Abdominal discomfort [Not Recovered/Not Resolved]
  - Abdominal pain upper [Unknown]
  - White blood cell disorder [Unknown]
  - Red blood cell count abnormal [Unknown]
  - Weight decreased [Not Recovered/Not Resolved]
  - White blood cell count decreased [Unknown]
  - Dizziness [Unknown]
  - Stomatitis [Not Recovered/Not Resolved]
  - Platelet count abnormal [Unknown]
  - Nausea [Unknown]
  - Decreased appetite [Not Recovered/Not Resolved]
